FAERS Safety Report 8169908-8 (Version None)
Quarter: 2012Q1

REPORT INFORMATION
  Report Type: 
  Country: None (occurrence: None)
  Receive Date: 20120228
  Receipt Date: 20120223
  Transmission Date: 20120608
  Serious: Yes (Disabling, Other)
  Sender: FDA-Public Use
  Company Number: US-PFIZER INC-2012049779

PATIENT
  Sex: Female

DRUGS (1)
  1. RAPAMUNE [Suspect]

REACTIONS (5)
  - TRANSPLANT [None]
  - FALL [None]
  - HIP SURGERY [None]
  - ELBOW OPERATION [None]
  - BONE DENSITY ABNORMAL [None]
